FAERS Safety Report 8305537-0 (Version None)
Quarter: 2012Q2

REPORT INFORMATION
  Report Type: 
  Country: None (occurrence: None)
  Receive Date: 20120423
  Receipt Date: 20120402
  Transmission Date: 20120825
  Serious: Yes (Hospitalization)
  Sender: FDA-Public Use
  Company Number: FR-GLAXOSMITHKLINE-Z0005800D

PATIENT
  Sex: Male

DRUGS (16)
  1. OXYGEN [Concomitant]
     Indication: PULMONARY ARTERIAL HYPERTENSION
     Dosage: 2U PER DAY
     Route: 055
     Dates: start: 20111101
  2. FUROSEMIDE [Concomitant]
     Indication: PULMONARY ARTERIAL HYPERTENSION
     Route: 048
  3. ILOPROST [Concomitant]
     Indication: PULMONARY ARTERIAL HYPERTENSION
     Dosage: 5MCG FOUR TIMES PER DAY
     Route: 055
     Dates: start: 20120405
  4. METOCLOPRAMIDE [Concomitant]
     Indication: PROPHYLAXIS OF NAUSEA AND VOMITING
     Dosage: 10MG SIX TIMES PER DAY
     Route: 048
     Dates: end: 20120406
  5. AMBRISENTAN [Suspect]
     Indication: PULMONARY ARTERIAL HYPERTENSION
     Dosage: 5MG PER DAY
     Route: 048
     Dates: start: 20100211
  6. TRAMADOL HCL [Concomitant]
     Indication: PAIN
     Dosage: 50MG TWICE PER DAY
     Route: 048
  7. TADALAFIL [Concomitant]
     Indication: PULMONARY ARTERIAL HYPERTENSION
     Dosage: 20MG TWICE PER DAY
     Route: 048
     Dates: start: 20120405, end: 20120409
  8. IPRATROPIUM BROMIDE [Concomitant]
     Indication: BRONCHOSPASM
     Dosage: .5MG EVERY 3 DAYS
     Route: 055
     Dates: start: 20120409, end: 20120415
  9. SPIRONOLACTONE [Concomitant]
     Indication: PULMONARY ARTERIAL HYPERTENSION
     Dosage: 50MG PER DAY
     Route: 048
  10. FLUINDIONE [Concomitant]
     Indication: JUGULAR VEIN THROMBOSIS
     Route: 048
     Dates: start: 20041201
  11. TRAMADOL HCL [Concomitant]
     Dosage: 150MG TWICE PER DAY
     Route: 048
     Dates: start: 20120413
  12. ALUMINUM HYDROXIDE AND MAGNESIUM TRISILICATE [Concomitant]
     Indication: PROPHYLAXIS AGAINST DIARRHOEA
     Dosage: 3 PER DAY
     Route: 048
  13. ACETAMINOPHEN [Concomitant]
     Indication: PAIN
     Dosage: 1000MG THREE TIMES PER DAY
     Route: 048
  14. EPOPROSTENOL SODIUM [Suspect]
     Indication: PULMONARY ARTERIAL HYPERTENSION
     Dosage: .014UKM PER DAY
     Route: 042
     Dates: start: 20111201, end: 20120412
  15. POTASSIUM CHLORIDE [Concomitant]
     Indication: PROPHYLAXIS
     Dosage: 600MG PER DAY
     Route: 048
     Dates: end: 20120406
  16. TERBUTALINE [Concomitant]
     Indication: BRONCHOSPASM
     Dosage: 5MG EVERY 3 DAYS
     Route: 055
     Dates: start: 20120409, end: 20120415

REACTIONS (1)
  - TOXIC SKIN ERUPTION [None]
